FAERS Safety Report 20333897 (Version 1)
Quarter: 2022Q1

REPORT INFORMATION
  Report Type: Spontaneous
  Country: DE (occurrence: DE)
  Receive Date: 20220113
  Receipt Date: 20220113
  Transmission Date: 20220423
  Serious: Yes (Hospitalization)
  Sender: FDA-Public Use
  Company Number: DE-ADRED-07578-01

PATIENT
  Age: 69 Year
  Sex: Male
  Weight: 88 kg

DRUGS (6)
  1. CELECOXIB [Suspect]
     Active Substance: CELECOXIB
     Dosage: 200 MG, 1X
     Route: 048
  2. LEVOCARNITIN [Concomitant]
     Dosage: 500 MILLIGRAM DAILY; 1-0-0-0,
     Route: 048
  3. HYDROCHLOROTHIAZIDE\RAMIPRIL [Concomitant]
     Active Substance: HYDROCHLOROTHIAZIDE\RAMIPRIL
     Dosage: 1 DOSAGE FORMS DAILY; 25|5 MG, 1-0-0-0,
     Route: 048
  4. DIETARY SUPPLEMENT\HERBALS\MILK THISTLE [Concomitant]
     Active Substance: DIETARY SUPPLEMENT\HERBALS\MILK THISTLE
     Dosage: 167 MILLIGRAM DAILY;  0-0-1-0,
     Route: 048
  5. VALPROIC ACID [Concomitant]
     Active Substance: VALPROIC ACID
     Dosage: 900 MILLIGRAM DAILY;  1-1-1-0,
     Route: 048
  6. HERBALS [Concomitant]
     Active Substance: HERBALS
     Dosage: NEEDS, DROPS
     Route: 048

REACTIONS (7)
  - Depressed level of consciousness [Unknown]
  - Memory impairment [Unknown]
  - Pyrexia [Unknown]
  - Aphasia [Unknown]
  - Decreased appetite [Unknown]
  - Disturbance in attention [Unknown]
  - Musculoskeletal pain [Unknown]
